FAERS Safety Report 6037328-8 (Version None)
Quarter: 2009Q1

REPORT INFORMATION
  Report Type: 
  Country: None (occurrence: None)
  Receive Date: 20090114
  Receipt Date: 20090107
  Transmission Date: 20090719
  Serious: Yes (Other)
  Sender: FDA-Public Use
  Company Number: PHEH2009US00599

PATIENT
  Sex: Male

DRUGS (4)
  1. AREDIA [Suspect]
     Indication: MULTIPLE MYELOMA
     Dosage: 90 MG, QMO
     Route: 042
     Dates: start: 19980101, end: 20030101
  2. ALKERAN [Concomitant]
  3. DECADRON                                /CAN/ [Concomitant]
  4. ATENOLOL [Concomitant]

REACTIONS (2)
  - BONE DISORDER [None]
  - PURULENT DISCHARGE [None]
